FAERS Safety Report 8137029-6 (Version None)
Quarter: 2012Q1

REPORT INFORMATION
  Report Type: 
  Country: None (occurrence: None)
  Receive Date: 20120215
  Receipt Date: 20120208
  Transmission Date: 20120608
  Serious: Yes (Hospitalization)
  Sender: FDA-Public Use
  Company Number: US-BIOGENIDEC-2012BI000244

PATIENT
  Sex: Male

DRUGS (1)
  1. AVONEX [Suspect]
     Indication: MULTIPLE SCLEROSIS
     Route: 030
     Dates: start: 20100901, end: 20110701

REACTIONS (5)
  - TREMOR [None]
  - CHILLS [None]
  - MULTIPLE SCLEROSIS [None]
  - MOBILITY DECREASED [None]
  - CENTRAL NERVOUS SYSTEM LESION [None]
